FAERS Safety Report 8155569-0 (Version None)
Quarter: 2012Q1

REPORT INFORMATION
  Report Type: 
  Country: None (occurrence: None)
  Receive Date: 20120215
  Receipt Date: 20120201
  Transmission Date: 20120608
  Serious: Yes (Hospitalization)
  Sender: FDA-Public Use
  Company Number: NGX_00875_2012

PATIENT
  Sex: Male

DRUGS (5)
  1. QUTENZA [Suspect]
     Indication: NEURALGIA
     Dosage: DF [PATCH, DORSAL AND THORACIC APPLICATION] TOPICAL
     Route: 061
     Dates: start: 20120125, end: 20120125
  2. OXYCONTIN [Concomitant]
  3. LYRICA [Concomitant]
  4. OXYCODONE HCL [Concomitant]
  5. SPIRIVA [Concomitant]

REACTIONS (6)
  - HYPERSENSITIVITY [None]
  - APPLICATION SITE PRURITUS [None]
  - SKIN LESION [None]
  - APPLICATION SITE ERYTHEMA [None]
  - SCRATCH [None]
  - APPLICATION SITE PAIN [None]
